FAERS Safety Report 25197366 (Version 1)
Quarter: 2025Q2

REPORT INFORMATION
  Report Type: Spontaneous
  Country: CN (occurrence: CN)
  Receive Date: 20250415
  Receipt Date: 20250415
  Transmission Date: 20250717
  Serious: Yes (Other)
  Sender: ALEXION PHARMACEUTICALS
  Company Number: CN-AstraZeneca-CH-00844236A

PATIENT
  Age: 38 Year

DRUGS (1)
  1. CRESTOR [Suspect]
     Active Substance: ROSUVASTATIN CALCIUM
     Indication: Lipids increased
     Route: 065

REACTIONS (4)
  - Liver injury [Unknown]
  - Cardiomyopathy [Unknown]
  - Myalgia [Unknown]
  - Product counterfeit [Unknown]
